FAERS Safety Report 9401309 (Version 2)
Quarter: 2013Q3

REPORT INFORMATION
  Report Type: Spontaneous
  Country: FR (occurrence: FR)
  Receive Date: 20130715
  Receipt Date: 20130801
  Transmission Date: 20140515
  Serious: Yes (Hospitalization)
  Sender: FDA-Public Use
  Company Number: FR-MERCK-1307FRA005697

PATIENT
  Age: 59 Year
  Sex: Female

DRUGS (6)
  1. CANCIDAS [Suspect]
     Indication: FUNGAL INFECTION
     Dosage: 70 MG, QD
     Route: 042
     Dates: start: 20130420, end: 20130427
  2. CANCIDAS [Suspect]
     Dosage: UNK
     Route: 042
     Dates: start: 20130502, end: 20130510
  3. GENTAMICIN SULFATE [Suspect]
     Indication: UROSEPSIS
     Dosage: 180 MG, ONCE
     Route: 042
     Dates: start: 20130419, end: 20130419
  4. CEFTRIAXONE SODIUM [Suspect]
     Indication: UROSEPSIS
     Dosage: 1 DF, QD
     Route: 042
     Dates: start: 20130419, end: 20130422
  5. CIPROFLOXACINE MYLAN [Suspect]
     Indication: UROSEPSIS
     Dosage: 3 DF, QD
     Route: 042
     Dates: start: 20130419, end: 20130422
  6. DAFALGAN [Suspect]
     Indication: PAIN
     Dosage: 3 DF, QD
     Route: 048

REACTIONS (2)
  - Hepatocellular injury [Recovered/Resolved]
  - Cholestasis [Recovering/Resolving]
